FAERS Safety Report 8301664-2 (Version None)
Quarter: 2012Q1

REPORT INFORMATION
  Report Type: 
  Country: None (occurrence: None)
  Receive Date: 20120326
  Receipt Date: 20110721
  Transmission Date: 20120608
  Serious: Yes (Other)
  Sender: FDA-Public Use
  Company Number: PHHY2011US65582

PATIENT
  Sex: Female

DRUGS (1)
  1. TASIGNA [Suspect]
     Indication: CHRONIC MYELOID LEUKAEMIA
     Dosage: 300 MG, BID, ORAL
     Route: 048
     Dates: start: 20100921, end: 20101108

REACTIONS (7)
  - TINNITUS [None]
  - CONSTIPATION [None]
  - RASH [None]
  - PRURITUS [None]
  - INSOMNIA [None]
  - ALOPECIA [None]
  - NAUSEA [None]
